FAERS Safety Report 5969081-8 (Version None)
Quarter: 2008Q4

REPORT INFORMATION
  Report Type: 
  Country: None (occurrence: None)
  Receive Date: 20081126
  Receipt Date: 20080926
  Transmission Date: 20090506
  Serious: No
  Sender: FDA-Public Use
  Company Number: US-ABBOTT-08P-163-0466903-00

PATIENT
  Sex: Male
  Weight: 90.8 kg

DRUGS (6)
  1. SIMCOR [Suspect]
     Indication: HIGH DENSITY LIPOPROTEIN DECREASED
     Dosage: 500/20 MG AT BEDTIME
     Route: 048
     Dates: start: 20080720
  2. SIMCOR [Suspect]
     Indication: LOW DENSITY LIPOPROTEIN INCREASED
  3. SIMCOR [Suspect]
     Indication: BLOOD TRIGLYCERIDES INCREASED
  4. BUPROPION HCL [Concomitant]
     Indication: ATTENTION DEFICIT/HYPERACTIVITY DISORDER
     Route: 048
  5. BUPROPION HCL [Concomitant]
     Indication: DEPRESSION
     Route: 048
  6. ACETYLSALICYLIC ACID SRT [Concomitant]
     Indication: DRUG USE FOR UNKNOWN INDICATION
     Route: 048

REACTIONS (14)
  - ASTHENIA [None]
  - COLD SWEAT [None]
  - DEHYDRATION [None]
  - ERYTHEMA [None]
  - EYE PAIN [None]
  - FALL [None]
  - FATIGUE [None]
  - FLATULENCE [None]
  - FLUSHING [None]
  - HYPERHIDROSIS [None]
  - HYPOTENSION [None]
  - INFLUENZA LIKE ILLNESS [None]
  - LOSS OF CONSCIOUSNESS [None]
  - PARAESTHESIA [None]
